FAERS Safety Report 15884675 (Version 3)
Quarter: 2020Q1

REPORT INFORMATION
  Report Type: Report from Study
  Country: BR (occurrence: BR)
  Receive Date: 20190129
  Receipt Date: 20200228
  Transmission Date: 20200409
  Serious: Yes (Hospitalization, Other)
  Sender: FDA-Public Use
  Company Number: BR-JNJFOC-20190135535

PATIENT
  Age: 62 Year
  Sex: Female

DRUGS (3)
  1. FOLIC ACID. [Concomitant]
     Active Substance: FOLIC ACID
     Route: 065
  2. LEFLUNOMIDE. [Concomitant]
     Active Substance: LEFLUNOMIDE
     Route: 065
  3. SIMPONI [Suspect]
     Active Substance: GOLIMUMAB
     Indication: RHEUMATOID ARTHRITIS
     Route: 058
     Dates: start: 201412

REACTIONS (1)
  - Pneumonia [Recovered/Resolved]

NARRATIVE: CASE EVENT DATE: 20181221
